FAERS Safety Report 6682353-7 (Version None)
Quarter: 2010Q2

REPORT INFORMATION
  Report Type: 
  Country: None (occurrence: None)
  Receive Date: 20100415
  Receipt Date: 20100405
  Transmission Date: 20101027
  Serious: Yes (Other)
  Sender: FDA-Public Use
  Company Number: JP-PFIZER INC-2010045129

PATIENT
  Sex: Female

DRUGS (1)
  1. CHAMPIX [Suspect]
     Dosage: UNK
     Route: 048

REACTIONS (6)
  - DEPRESSION [None]
  - FOAMING AT MOUTH [None]
  - MALAISE [None]
  - MUSCLE SPASMS [None]
  - NASOPHARYNGITIS [None]
  - POSTURE ABNORMAL [None]
